FAERS Safety Report 5858252-7 (Version None)
Quarter: 2008Q3

REPORT INFORMATION
  Report Type: 
  Country: None (occurrence: None)
  Receive Date: 20080826
  Receipt Date: 20080820
  Transmission Date: 20090109
  Serious: Yes (Other)
  Sender: FDA-Public Use
  Company Number: A0743529A

PATIENT
  Age: 56 Year
  Sex: Female

DRUGS (4)
  1. VERAMYST [Suspect]
     Dosage: 1SPR PER DAY
     Route: 045
     Dates: start: 20080805, end: 20080818
  2. BLOOD PRESSURE MEDICATION [Concomitant]
  3. CHOLESTEROL [Concomitant]
  4. SYNTHROID [Concomitant]

REACTIONS (1)
  - NASAL SEPTUM PERFORATION [None]
